FAERS Safety Report 4488985-9 (Version None)
Quarter: 2004Q4

REPORT INFORMATION
  Report Type: 
  Country: None (occurrence: None)
  Receive Date: 20041027
  Receipt Date: 20041013
  Transmission Date: 20050328
  Serious: Yes (Death)
  Sender: FDA-Public Use
  Company Number: 2004S1002703

PATIENT
  Age: 78 Year
  Sex: Male
  Weight: 55.3388 kg

DRUGS (2)
  1. CLOZAPINE [Suspect]
     Dosage: 25 MG, Q HS, ORAL
     Route: 048
     Dates: start: 20020901
  2. CARBIDOPA AND LEVODOPA [Concomitant]

REACTIONS (1)
  - DEATH [None]
